FAERS Safety Report 21534437 (Version 1)
Quarter: 2022Q4

REPORT INFORMATION
  Report Type: Spontaneous
  Country: US (occurrence: US)
  Receive Date: 20221101
  Receipt Date: 20221101
  Transmission Date: 20230112
  Serious: Yes (Hospitalization)
  Sender: FDA-Public Use
  Company Number: US-ELI_LILLY_AND_COMPANY-US202210011323

PATIENT
  Age: 85 Year
  Sex: Male

DRUGS (2)
  1. FORTEO [Suspect]
     Active Substance: TERIPARATIDE
     Indication: Bone density decreased
     Dosage: UNK UNK, UNKNOWN
     Route: 065
     Dates: start: 20220820
  2. FORTEO [Suspect]
     Active Substance: TERIPARATIDE
     Indication: Bone density decreased
     Dosage: UNK UNK, UNKNOWN
     Route: 065
     Dates: start: 20220820

REACTIONS (1)
  - Fall [Unknown]

NARRATIVE: CASE EVENT DATE: 20221004
